FAERS Safety Report 10570647 (Version 5)
Quarter: 2015Q1

REPORT INFORMATION
  Report Type: Report from Study
  Country: TW (occurrence: TW)
  Receive Date: 20141107
  Receipt Date: 20150330
  Transmission Date: 20150720
  Serious: Yes (Hospitalization, Other)
  Sender: FDA-Public Use
  Company Number: PHHY2014TW143931

PATIENT
  Age: 79 Year
  Sex: Female
  Weight: 46 kg

DRUGS (1)
  1. ACLASTA [Suspect]
     Active Substance: ZOLEDRONIC ACID
     Indication: OSTEOPOROSIS
     Dosage: 5 MG, UNK
     Route: 042
     Dates: start: 20121025, end: 20121025

REACTIONS (8)
  - Altered state of consciousness [Unknown]
  - Back pain [Recovered/Resolved]
  - Hemiplegia [Unknown]
  - Spinal compression fracture [Unknown]
  - Cerebral haemorrhage [Recovered/Resolved with Sequelae]
  - Decreased activity [Recovered/Resolved]
  - Loss of consciousness [Unknown]
  - Contusion [Unknown]

NARRATIVE: CASE EVENT DATE: 20130329
